FAERS Safety Report 5322071-0 (Version None)
Quarter: 2007Q2

REPORT INFORMATION
  Report Type: 
  Country: None (occurrence: None)
  Receive Date: 20070220
  Receipt Date: 20060523
  Transmission Date: 20071010
  Serious: Yes (Disabling, Other)
  Sender: FDA-Public Use
  Company Number: WAES 0605USA04474

PATIENT
  Age: 41 Year
  Sex: Male

DRUGS (5)
  1. PROPECIA [Suspect]
     Indication: ALOPECIA
     Dosage: 1MG/DAILY'; PO
     Route: 048
     Dates: start: 20050301, end: 20060301
  2. CIALIS [Concomitant]
  3. SEROQUEL [Concomitant]
  4. VIAGRA [Concomitant]
  5. WELLBUTRIN [Concomitant]

REACTIONS (4)
  - BLOOD TESTOSTERONE DECREASED [None]
  - ERECTILE DYSFUNCTION [None]
  - LIBIDO DECREASED [None]
  - SEXUAL DYSFUNCTION [None]
